FAERS Safety Report 7513172-7 (Version None)
Quarter: 2011Q2

REPORT INFORMATION
  Report Type: 
  Country: None (occurrence: None)
  Receive Date: 20110531
  Receipt Date: 20110519
  Transmission Date: 20111010
  Serious: Yes (Hospitalization, Other)
  Sender: FDA-Public Use
  Company Number: US-MERCK-0911USA02010

PATIENT
  Age: 61 Year
  Sex: Female
  Weight: 71 kg

DRUGS (5)
  1. PREVACID [Concomitant]
     Indication: DYSPEPSIA
     Route: 065
     Dates: start: 20050101
  2. FOSAMAX [Suspect]
     Indication: OSTEOPENIA
     Route: 048
     Dates: start: 19990101, end: 20080920
  3. PROTONIX [Concomitant]
     Indication: DYSPEPSIA
     Route: 065
     Dates: start: 20050101
  4. FOSAMAX [Suspect]
     Indication: OSTEOPOROSIS
     Route: 048
     Dates: start: 19990101, end: 20080920
  5. PIROXICAM [Concomitant]
     Indication: INFLAMMATION
     Route: 065
     Dates: start: 20050211

REACTIONS (64)
  - SEBORRHOEIC KERATOSIS [None]
  - ABDOMINAL PAIN LOWER [None]
  - EAR PAIN [None]
  - ABSCESS [None]
  - POSTERIOR CAPSULE OPACIFICATION [None]
  - IMPAIRED HEALING [None]
  - EDENTULOUS [None]
  - PAIN IN EXTREMITY [None]
  - OTITIS EXTERNA [None]
  - ORAL INFECTION [None]
  - MERALGIA PARAESTHETICA [None]
  - VERTEBRAL FORAMINAL STENOSIS [None]
  - SPINAL OSTEOARTHRITIS [None]
  - DENTAL ALVEOLAR ANOMALY [None]
  - JAW FRACTURE [None]
  - MUSCLE STRAIN [None]
  - RESTLESS LEGS SYNDROME [None]
  - PRIMARY SEQUESTRUM [None]
  - INFLAMMATION [None]
  - POLLAKIURIA [None]
  - ARTERIOSCLEROSIS CORONARY ARTERY [None]
  - LUMBAR SPINAL STENOSIS [None]
  - ABDOMINAL PAIN [None]
  - MUSCULOSKELETAL PAIN [None]
  - CHEST PAIN [None]
  - CARDIAC DISORDER [None]
  - DYSPEPSIA [None]
  - COSTOCHONDRITIS [None]
  - HYPERTENSION [None]
  - TOOTH DEPOSIT [None]
  - DIVERTICULUM INTESTINAL [None]
  - ANGINA PECTORIS [None]
  - OSTEONECROSIS OF JAW [None]
  - ABSCESS DRAINAGE [None]
  - PAIN [None]
  - INTERVERTEBRAL DISC PROTRUSION [None]
  - GASTROOESOPHAGEAL REFLUX DISEASE [None]
  - MITRAL VALVE DISEASE [None]
  - INSOMNIA [None]
  - HYPERCHOLESTEROLAEMIA [None]
  - DISLOCATION OF VERTEBRA [None]
  - FIBROCYSTIC BREAST DISEASE [None]
  - INTERVERTEBRAL DISC DEGENERATION [None]
  - HIATUS HERNIA [None]
  - BLOOD TRIGLYCERIDES INCREASED [None]
  - TOOTH ABSCESS [None]
  - HYPOTHYROIDISM [None]
  - BREAST DISORDER [None]
  - ANXIETY [None]
  - TOOTH FRACTURE [None]
  - SPINAL DISORDER [None]
  - INTERVERTEBRAL DISC DISPLACEMENT [None]
  - BACK PAIN [None]
  - ANAEMIA [None]
  - ARTHRITIS [None]
  - BENIGN BREAST NEOPLASM [None]
  - CERUMEN IMPACTION [None]
  - CATARACT [None]
  - OTITIS MEDIA [None]
  - OSTEOARTHRITIS [None]
  - OSTEITIS [None]
  - BACK DISORDER [None]
  - CHRONIC OBSTRUCTIVE PULMONARY DISEASE [None]
  - HAEMORRHOIDS [None]
